FAERS Safety Report 10373658 (Version 1)
Quarter: 2014Q1

REPORT INFORMATION
  Report Type: Spontaneous
  Country: US (occurrence: None)
  Receive Date: 20140306
  Receipt Date: 20140306
  Transmission Date: 20141002
  Serious: Yes (Hospitalization, Other)
  Sender: FDA-Public Use
  Company Number: 163-21880-13040469

PATIENT
  Age: 75 Year
  Sex: Male
  Weight: 93.9 kg

DRUGS (10)
  1. REVLIMID (LENALIDOMIDE) (10 MILLIGRAM, CAPSULES) [Suspect]
     Indication: AMYLOIDOSIS
     Dosage: 10 MG, 21 IN 28 D, PO
     Route: 048
     Dates: start: 20120902
  2. DEXAMETHASONE [Concomitant]
  3. ASPIRIN (ACETYLSALICYLIC ACID) (TABLETS) [Concomitant]
  4. LIPITOR (ATORVASTATIN) [Concomitant]
  5. VITAMIN D (ERGOCALCIFEROL) [Concomitant]
  6. DIURETICS [Concomitant]
  7. ATORVASTATIN (TABLETS) [Concomitant]
  8. LASIX (FUROSEMIDE) [Concomitant]
  9. OMEPRAZOLE [Concomitant]
  10. RED BLOOD CELLS [Concomitant]

REACTIONS (6)
  - Renal failure acute [None]
  - Pancytopenia [None]
  - Cardiac failure congestive [None]
  - Blood pressure decreased [None]
  - Fluid overload [None]
  - Dyspnoea exertional [None]
